FAERS Safety Report 15940296 (Version 2)
Quarter: 2019Q2

REPORT INFORMATION
  Report Type: Spontaneous
  Country: US (occurrence: US)
  Receive Date: 20190208
  Receipt Date: 20190423
  Transmission Date: 20190711
  Serious: Yes (Other)
  Sender: FDA-Public Use
  Company Number: US-ASTRAZENECA-2018SF21938

PATIENT
  Age: 24569 Day
  Weight: 95.3 kg

DRUGS (42)
  1. NEXIUM [Suspect]
     Active Substance: ESOMEPRAZOLE MAGNESIUM
     Indication: GASTROOESOPHAGEAL REFLUX DISEASE
     Route: 048
     Dates: start: 20100608, end: 20131117
  2. PRILOSEC [Suspect]
     Active Substance: OMEPRAZOLE MAGNESIUM
     Indication: GASTROOESOPHAGEAL REFLUX DISEASE
     Route: 048
     Dates: start: 20071022, end: 20080429
  3. MELOXICAM. [Concomitant]
     Active Substance: MELOXICAM
  4. PROZAC [Concomitant]
     Active Substance: FLUOXETINE HYDROCHLORIDE
  5. LEVEMIR [Concomitant]
     Active Substance: INSULIN DETEMIR
  6. AMLODIPINE BESYLATE. [Concomitant]
     Active Substance: AMLODIPINE BESYLATE
  7. VENTOLIN HFA [Concomitant]
     Active Substance: ALBUTEROL SULFATE
  8. SIMVASTATIN. [Concomitant]
     Active Substance: SIMVASTATIN
  9. DARVOCET-N 100 [Concomitant]
     Active Substance: ACETAMINOPHEN\PROPOXYPHENE NAPSYLATE
  10. PROTONIX [Suspect]
     Active Substance: PANTOPRAZOLE SODIUM
     Indication: GASTROOESOPHAGEAL REFLUX DISEASE
     Route: 065
     Dates: start: 2007, end: 2009
  11. LASIX [Concomitant]
     Active Substance: FUROSEMIDE
  12. MORPHINE [Concomitant]
     Active Substance: MORPHINE
  13. TIZANIDINE. [Concomitant]
     Active Substance: TIZANIDINE
  14. ONDANSETRON [Concomitant]
     Active Substance: ONDANSETRON
  15. BENZONATATE. [Concomitant]
     Active Substance: BENZONATATE
  16. PREDNISONE. [Concomitant]
     Active Substance: PREDNISONE
  17. PRILOSEC [Suspect]
     Active Substance: OMEPRAZOLE MAGNESIUM
     Indication: GASTROOESOPHAGEAL REFLUX DISEASE
     Route: 048
     Dates: start: 2007, end: 2009
  18. PROTONIX [Suspect]
     Active Substance: PANTOPRAZOLE SODIUM
     Indication: GASTROOESOPHAGEAL REFLUX DISEASE
     Route: 065
     Dates: start: 20090202
  19. AMOXICILLIN. [Concomitant]
     Active Substance: AMOXICILLIN
  20. TETRACYCLINE [Concomitant]
     Active Substance: TETRACYCLINE
  21. LOVASTATIN. [Concomitant]
     Active Substance: LOVASTATIN
  22. ALLOPURINOL. [Concomitant]
     Active Substance: ALLOPURINOL
  23. CIPROFLOXACIN. [Concomitant]
     Active Substance: CIPROFLOXACIN
  24. GLUCOTROL XL [Concomitant]
     Active Substance: GLIPIZIDE
  25. NEXIUM [Suspect]
     Active Substance: ESOMEPRAZOLE MAGNESIUM
     Indication: GASTROOESOPHAGEAL REFLUX DISEASE
     Route: 048
     Dates: start: 20100608, end: 20131117
  26. PRILOSEC [Suspect]
     Active Substance: OMEPRAZOLE MAGNESIUM
     Indication: GASTROOESOPHAGEAL REFLUX DISEASE
     Route: 048
     Dates: start: 20071022, end: 20080429
  27. ACIPHEX [Suspect]
     Active Substance: RABEPRAZOLE SODIUM
     Dates: start: 2007, end: 2009
  28. DOXYCYCLINE. [Concomitant]
     Active Substance: DOXYCYCLINE
  29. LEVOFLOXACIN. [Concomitant]
     Active Substance: LEVOFLOXACIN
  30. LISINOPRIL. [Concomitant]
     Active Substance: LISINOPRIL
  31. REQUIP [Concomitant]
     Active Substance: ROPINIROLE HYDROCHLORIDE
  32. LISINOPRIL. [Concomitant]
     Active Substance: LISINOPRIL
  33. LYRICA [Concomitant]
     Active Substance: PREGABALIN
  34. FLUTICASONE. [Concomitant]
     Active Substance: FLUTICASONE
  35. LEVOTHYROXINE. [Concomitant]
     Active Substance: LEVOTHYROXINE
  36. VIMOVO [Suspect]
     Active Substance: ESOMEPRAZOLE MAGNESIUM\NAPROXEN
     Route: 048
     Dates: start: 2007, end: 2009
  37. PRILOSEC [Suspect]
     Active Substance: OMEPRAZOLE MAGNESIUM
     Indication: GASTROOESOPHAGEAL REFLUX DISEASE
     Route: 048
     Dates: start: 2007, end: 2009
  38. PROTONIX [Suspect]
     Active Substance: PANTOPRAZOLE SODIUM
     Indication: GASTROOESOPHAGEAL REFLUX DISEASE
     Route: 065
     Dates: start: 2007, end: 2009
  39. PROTONIX [Suspect]
     Active Substance: PANTOPRAZOLE SODIUM
     Indication: GASTROOESOPHAGEAL REFLUX DISEASE
     Route: 065
     Dates: start: 20090202
  40. METOPROLOL. [Concomitant]
     Active Substance: METOPROLOL
  41. ALLOPURINOL. [Concomitant]
     Active Substance: ALLOPURINOL
  42. SYMBICORT [Concomitant]
     Active Substance: BUDESONIDE\FORMOTEROL FUMARATE DIHYDRATE

REACTIONS (1)
  - Chronic kidney disease [Not Recovered/Not Resolved]

NARRATIVE: CASE EVENT DATE: 20071022
